FAERS Safety Report 5372824-8 (Version None)
Quarter: 2007Q2

REPORT INFORMATION
  Report Type: 
  Country: None (occurrence: None)
  Receive Date: 20070627
  Receipt Date: 20070615
  Transmission Date: 20071010
  Serious: Yes (Other)
  Sender: FDA-Public Use
  Company Number: FR-PFIZER INC-2007049757

PATIENT
  Age: 18 Year
  Sex: Female

DRUGS (1)
  1. FELDENE [Suspect]
     Indication: TENDONITIS
     Route: 048

REACTIONS (1)
  - COUGH [None]
